FAERS Safety Report 17101601 (Version 1)
Quarter: 2019Q4

REPORT INFORMATION
  Report Type: Report from Study
  Country: US (occurrence: US)
  Receive Date: 20191202
  Receipt Date: 20191202
  Transmission Date: 20200122
  Serious: Yes (Hospitalization)
  Sender: FDA-Public Use
  Company Number: US-GILEAD-2019-0440339

PATIENT
  Age: 17 Year
  Sex: Male

DRUGS (1)
  1. AZTREONAM LYSINE [Suspect]
     Active Substance: AZTREONAM LYSINE
     Indication: CYSTIC FIBROSIS
     Dosage: INHALE 75 MG VIA NEBULIZER TID 28 DAYS ON THEN 28 DAYS OFF
     Route: 055
     Dates: start: 20130309

REACTIONS (2)
  - Product dose omission [Recovered/Resolved]
  - Cystic fibrosis respiratory infection suppression [Unknown]
